FAERS Safety Report 8065614-9 (Version None)
Quarter: 2011Q4

REPORT INFORMATION
  Report Type: 
  Country: None (occurrence: None)
  Receive Date: 20111221
  Receipt Date: 20110617
  Transmission Date: 20120403
  Serious: Yes (Hospitalization, Other)
  Sender: FDA-Public Use
  Company Number: PHHY2010US89444

PATIENT
  Age: 35 Year
  Sex: Female
  Weight: 82 kg

DRUGS (7)
  1. EXJADE [Suspect]
     Indication: SICKLE CELL ANAEMIA
     Dosage: 1500 MG, DAILY, ORAL
     Route: 048
     Dates: start: 20100308
  2. TRATADINE [Concomitant]
  3. DIPHENHYDRAMINE HCL [Concomitant]
  4. VICODIN [Concomitant]
  5. DESFERAL [Concomitant]
  6. OXYCONTIN [Concomitant]
  7. OMEPRAZOLE [Concomitant]

REACTIONS (3)
  - SICKLE CELL ANAEMIA WITH CRISIS [None]
  - PAIN [None]
  - SERUM FERRITIN INCREASED [None]
